FAERS Safety Report 20946478 (Version 2)
Quarter: 2022Q2

REPORT INFORMATION
  Report Type: Report from Study
  Country: IT (occurrence: IT)
  Receive Date: 20220610
  Receipt Date: 20220610
  Transmission Date: 20220721
  Serious: Yes (Life-Threatening, Disabling, Other)
  Sender: FDA-Public Use
  Company Number: IT-PFIZER INC-202200796494

PATIENT
  Age: 64 Year
  Sex: Female

DRUGS (3)
  1. LINEZOLID [Suspect]
     Active Substance: LINEZOLID
     Indication: Meningitis bacterial
     Dosage: 600 MG, 2X/DAY (EVERY 12 H)
     Route: 042
  2. CEFTRIAXONE [Suspect]
     Active Substance: CEFTRIAXONE
     Indication: Meningitis bacterial
     Dosage: 4000 MG, 1X/DAY (EVERY 24 H)
     Route: 042
  3. DEXAMETHASONE [Concomitant]
     Active Substance: DEXAMETHASONE
     Indication: Meningitis bacterial
     Dosage: 8 MG, 4X/DAY (EVERY 6 H)
     Route: 042

REACTIONS (2)
  - Nervous system disorder [Unknown]
  - Deafness [Unknown]
